FAERS Safety Report 5729832-4 (Version None)
Quarter: 2008Q2

REPORT INFORMATION
  Report Type: 
  Country: None (occurrence: None)
  Receive Date: 20080501
  Receipt Date: 20080421
  Transmission Date: 20081010
  Serious: Yes (Other)
  Sender: FDA-Public Use
  Company Number: 2008AP000246

PATIENT
  Age: 33 Year
  Sex: Female

DRUGS (17)
  1. PAROXETINE HCL [Suspect]
     Indication: DEPRESSION
     Dosage: 20 MG; QD ; 20 MG; QD; 10 MG; QD; 20 MG; QD; 17.5 MG; QD; 14 MG; QD; 10 MG; QD; 10 MG; QD
     Dates: start: 19960620, end: 20070227
  2. PAROXETINE HCL [Suspect]
     Indication: DEPRESSION
     Dosage: 20 MG; QD ; 20 MG; QD; 10 MG; QD; 20 MG; QD; 17.5 MG; QD; 14 MG; QD; 10 MG; QD; 10 MG; QD
     Dates: start: 19960101
  3. PAROXETINE HCL [Suspect]
     Indication: DEPRESSION
     Dosage: 20 MG; QD ; 20 MG; QD; 10 MG; QD; 20 MG; QD; 17.5 MG; QD; 14 MG; QD; 10 MG; QD; 10 MG; QD
     Dates: start: 19960620
  4. PAROXETINE HCL [Suspect]
     Indication: DEPRESSION
     Dosage: 20 MG; QD ; 20 MG; QD; 10 MG; QD; 20 MG; QD; 17.5 MG; QD; 14 MG; QD; 10 MG; QD; 10 MG; QD
     Dates: start: 19980101
  5. PAROXETINE HCL [Suspect]
     Indication: DEPRESSION
     Dosage: 20 MG; QD ; 20 MG; QD; 10 MG; QD; 20 MG; QD; 17.5 MG; QD; 14 MG; QD; 10 MG; QD; 10 MG; QD
     Dates: start: 20030601
  6. PAROXETINE HCL [Suspect]
     Indication: DEPRESSION
     Dosage: 20 MG; QD ; 20 MG; QD; 10 MG; QD; 20 MG; QD; 17.5 MG; QD; 14 MG; QD; 10 MG; QD; 10 MG; QD
     Dates: start: 20030601
  7. PAROXETINE HCL [Suspect]
     Indication: DEPRESSION
     Dosage: 20 MG; QD ; 20 MG; QD; 10 MG; QD; 20 MG; QD; 17.5 MG; QD; 14 MG; QD; 10 MG; QD; 10 MG; QD
     Dates: start: 20040101
  8. PAROXETINE HCL [Suspect]
     Indication: DEPRESSION
     Dosage: 20 MG; QD ; 20 MG; QD; 10 MG; QD; 20 MG; QD; 17.5 MG; QD; 14 MG; QD; 10 MG; QD; 10 MG; QD
     Dates: start: 20040801
  9. PAROXETINE HCL [Suspect]
     Indication: DEPRESSION
     Dosage: 20 MG; QD ; 20 MG; QD; 10 MG; QD; 20 MG; QD; 17.5 MG; QD; 14 MG; QD; 10 MG; QD; 10 MG; QD
     Dates: start: 20050301
  10. TRAZODONE HCL [Concomitant]
  11. ESCITALOPRAM OXALATE (ESCITALOPRAM OXALATE) [Concomitant]
  12. DIAZEPAM [Concomitant]
  13. MIRTAZAPINE [Concomitant]
  14. OLANZAPINE [Concomitant]
  15. RISPERDAL [Concomitant]
  16. TEMAZEPAM [Concomitant]
  17. VENLAFAXINE HCL [Concomitant]

REACTIONS (22)
  - ANXIETY [None]
  - CONDITION AGGRAVATED [None]
  - CONFUSIONAL STATE [None]
  - DEPRESSION [None]
  - DISSOCIATION [None]
  - DIZZINESS [None]
  - DUODENITIS [None]
  - DYSTHYMIC DISORDER [None]
  - GASTRIC POLYPS [None]
  - GASTRITIS [None]
  - GENERALISED ANXIETY DISORDER [None]
  - HYPERHIDROSIS [None]
  - HYPERVIGILANCE [None]
  - INSOMNIA [None]
  - MOOD SWINGS [None]
  - PERSONALITY CHANGE [None]
  - PSYCHOMOTOR HYPERACTIVITY [None]
  - RESTLESSNESS [None]
  - STOMACH DISCOMFORT [None]
  - SUICIDAL IDEATION [None]
  - TREMOR [None]
  - WITHDRAWAL SYNDROME [None]
